FAERS Safety Report 10399717 (Version 1)
Quarter: 2014Q3

REPORT INFORMATION
  Report Type: Spontaneous
  Country: FR (occurrence: FR)
  Receive Date: 20140821
  Receipt Date: 20140821
  Transmission Date: 20150326
  Serious: Yes (Hospitalization)
  Sender: FDA-Public Use
  Company Number: FR-BRISTOL-MYERS SQUIBB COMPANY-21308390

PATIENT
  Age: 91 Year
  Sex: Male

DRUGS (9)
  1. DAKTARIN [Suspect]
     Active Substance: MICONAZOLE NITRATE
     Indication: ORAL FUNGAL INFECTION
     Dosage: 1 DF= 2% ORAL GEL APPLICATIONS
     Route: 048
     Dates: start: 20140623, end: 20140630
  2. COUMADINE [Suspect]
     Active Substance: WARFARIN SODIUM
     Indication: ARRHYTHMIA
     Dosage: FORMULATION:COUMADINE 2 MG TABLET ?DECREASED:1/4TH TAB/D
     Route: 048
     Dates: start: 20140623, end: 20140630
  3. XATRAL [Concomitant]
     Active Substance: ALFUZOSIN
  4. PIPERACILLIN AND TAZOBACTAM [Concomitant]
     Active Substance: PIPERACILLIN SODIUM\TAZOBACTAM SODIUM
  5. CEFTRIAXONE. [Concomitant]
     Active Substance: CEFTRIAXONE
  6. COUMADINE [Suspect]
     Active Substance: WARFARIN SODIUM
     Indication: ATRIAL FIBRILLATION
     Dosage: FORMULATION:COUMADINE 2 MG TABLET ?DECREASED:1/4TH TAB/D
     Route: 048
     Dates: start: 20140623, end: 20140630
  7. LOXEN [Concomitant]
     Active Substance: NICARDIPINE HYDROCHLORIDE
  8. SALBUTAMOL [Concomitant]
     Active Substance: ALBUTEROL
  9. IPRATROPIUM BROMIDE. [Concomitant]
     Active Substance: IPRATROPIUM BROMIDE

REACTIONS (4)
  - Lung disorder [Unknown]
  - Oral fungal infection [Unknown]
  - Overdose [Recovered/Resolved]
  - Prothrombin level decreased [Recovered/Resolved]

NARRATIVE: CASE EVENT DATE: 20140623
